FAERS Safety Report 6761078-3 (Version None)
Quarter: 2010Q2

REPORT INFORMATION
  Report Type: 
  Country: None (occurrence: None)
  Receive Date: 20100608
  Receipt Date: 20100601
  Transmission Date: 20101027
  Serious: Yes (Life-Threatening)
  Sender: FDA-Public Use
  Company Number: B0659458A

PATIENT
  Sex: Female
  Weight: 6 kg

DRUGS (1)
  1. LANVIS [Suspect]
     Indication: CROHN'S DISEASE
     Dosage: 20MG PER DAY
     Dates: start: 20080611

REACTIONS (1)
  - T-CELL LYMPHOMA [None]
